FAERS Safety Report 25777203 (Version 5)
Quarter: 2025Q4

REPORT INFORMATION
  Report Type: Spontaneous
  Country: US (occurrence: US)
  Receive Date: 20250909
  Receipt Date: 20251106
  Transmission Date: 20260118
  Serious: Yes (Other)
  Sender: BRISTOL-MYERS SQUIBB COMPANY
  Company Number: US-BRISTOL-MYERS SQUIBB COMPANY-2025-122376

PATIENT
  Age: 75 Year
  Sex: Male

DRUGS (4)
  1. REVLIMID [Suspect]
     Active Substance: LENALIDOMIDE
     Indication: Plasma cell myeloma
     Dosage: 21 DAYS ON 7 OFF
     Route: 048
  2. REVLIMID [Suspect]
     Active Substance: LENALIDOMIDE
     Dosage: QD
     Route: 048
  3. REVLIMID [Suspect]
     Active Substance: LENALIDOMIDE
     Dosage: FREQUENCY: 21 DAYS ON AND 7 DAYS OFF.
     Route: 048
     Dates: start: 20250915
  4. REVLIMID [Suspect]
     Active Substance: LENALIDOMIDE
     Dosage: DRUG SEPARATE DOSAGE NUMBER: 21
     Route: 048

REACTIONS (3)
  - Laboratory test abnormal [Unknown]
  - Neuropathy peripheral [Unknown]
  - Protein total increased [Unknown]
